FAERS Safety Report 4844046-8 (Version None)
Quarter: 2005Q4

REPORT INFORMATION
  Report Type: 
  Country: None (occurrence: None)
  Receive Date: 20051202
  Receipt Date: 20030516
  Transmission Date: 20060501
  Serious: Yes (Other)
  Sender: FDA-Public Use
  Company Number: AU-ROCHE-338058

PATIENT
  Age: 28 Year
  Sex: Male
  Weight: 91 kg

DRUGS (3)
  1. ROACCUTANE [Suspect]
     Route: 048
     Dates: start: 20030224, end: 20030411
  2. ROACCUTANE [Suspect]
     Route: 048
     Dates: start: 20030411, end: 20030507
  3. ERYTHROMYCIN [Concomitant]
     Route: 048
     Dates: start: 20030219, end: 20030228

REACTIONS (3)
  - DEPERSONALISATION [None]
  - FEELING ABNORMAL [None]
  - PARANOIA [None]
